FAERS Safety Report 7716440-9 (Version None)
Quarter: 2011Q3

REPORT INFORMATION
  Report Type: 
  Country: None (occurrence: None)
  Receive Date: 20110829
  Receipt Date: 20110822
  Transmission Date: 20111222
  Serious: Yes (Hospitalization, Disabling)
  Sender: FDA-Public Use
  Company Number: US-MERCK-1105USA03424

PATIENT
  Age: 62 Year
  Sex: Female

DRUGS (9)
  1. HORMONES (UNSPECIFIED) [Concomitant]
     Route: 065
     Dates: start: 20010101, end: 20090101
  2. FOSAMAX [Suspect]
     Route: 048
     Dates: start: 20090101, end: 20100101
  3. FOSAMAX [Suspect]
     Route: 048
     Dates: start: 20090101, end: 20100101
  4. FOSAMAX PLUS D [Suspect]
     Indication: OSTEOPENIA
     Route: 048
  5. BONIVA [Suspect]
     Indication: OSTEOPOROSIS
     Route: 048
     Dates: start: 20100201, end: 20101201
  6. BONIVA [Suspect]
     Indication: OSTEOPENIA
     Route: 048
     Dates: start: 20100201, end: 20101201
  7. FOSAMAX [Suspect]
     Indication: OSTEOPOROSIS
     Route: 048
     Dates: start: 20030101, end: 20090101
  8. FOSAMAX [Suspect]
     Indication: OSTEOPENIA
     Route: 048
     Dates: start: 20030101, end: 20090101
  9. FOSAMAX PLUS D [Suspect]
     Indication: OSTEOPOROSIS
     Route: 048

REACTIONS (6)
  - STRESS FRACTURE [None]
  - INFLAMMATORY BOWEL DISEASE [None]
  - FEMUR FRACTURE [None]
  - BLOOD CHOLESTEROL INCREASED [None]
  - LOW TURNOVER OSTEOPATHY [None]
  - TOOTH DISORDER [None]
